FAERS Safety Report 24671126 (Version 1)
Quarter: 2024Q4

REPORT INFORMATION
  Report Type: Report from Study
  Country: ES (occurrence: ES)
  Receive Date: 20241127
  Receipt Date: 20241127
  Transmission Date: 20250115
  Serious: Yes (Other)
  Sender: TEVA
  Company Number: ES-TEVA-VS-3267229

PATIENT
  Age: 76 Year
  Sex: Female

DRUGS (12)
  1. TERIPARATIDE [Suspect]
     Active Substance: TERIPARATIDE
     Indication: Osteoporosis
     Dosage: DOSE: 20MCG/80MCL
     Route: 065
     Dates: start: 20240805
  2. BISOPROLOL FUMARATE [Concomitant]
     Active Substance: BISOPROLOL FUMARATE
     Indication: Cardiac failure
     Dosage: 1-0-1 (BUT ONLY TAKES 1 BECAUSE SHE SAYS SHE CAN^T TAKE 2 A DAY), START DATE: LONG TIME AGO, END ...
  3. RIVOTRIL [Concomitant]
     Active Substance: CLONAZEPAM
     Indication: Tremor
     Dosage: START DATE: LONG TIME AGO, END DATE: ONGOING
  4. ORENCIA [Concomitant]
     Active Substance: ABATACEPT
     Indication: Rheumatoid arthritis
     Dosage: DOSAGE: 1 INJECTION, START DATE: LONG TIME AGO, END DATE: ONGOING
  5. DOXAZOSIN MESYLATE [Concomitant]
     Active Substance: DOXAZOSIN MESYLATE
     Indication: Hypertension
     Dosage: START DATE: LONG TIME AGO, END DATE: ONGOING
  6. Trinomia [Concomitant]
     Indication: Cerebrovascular accident
     Dosage: START DATE: LONG TIME AGO, END DATE: ONGOING
  7. GABAPENTIN [Concomitant]
     Active Substance: GABAPENTIN
     Indication: Tremor
     Dosage: START DATE: LONG TIME AGO, END DATE: ONGOING
  8. LORMETAZEPAM [Concomitant]
     Active Substance: LORMETAZEPAM
     Indication: Insomnia
     Dosage: START DATE: LONG TIME AGO, END DATE: ONGOING
  9. RABEPRAZOLE SODIUM [Concomitant]
     Active Substance: RABEPRAZOLE SODIUM
     Indication: Gastrointestinal disorder
     Dosage: START DATE: LONG TIME AGO, END DATE: ONGOING
  10. ARAVA [Concomitant]
     Active Substance: LEFLUNOMIDE
     Indication: Rheumatoid arthritis
     Dosage: ARAVA 20, START DATE: LONG TIME AGO, END DATE: ONGOING
  11. HYDROXYCHLOROQUINE SULFATE [Concomitant]
     Active Substance: HYDROXYCHLOROQUINE SULFATE
     Indication: Rheumatoid arthritis
     Dosage: START DATE: LONG TIME AGO, END DATE: ONGOING
  12. PREDNISONE [Concomitant]
     Active Substance: PREDNISONE
     Indication: Rheumatoid arthritis
     Dosage: START DATE: LONG TIME AGO, END DATE: ONGOING

REACTIONS (4)
  - Amnesia [Not Recovered/Not Resolved]
  - Dizziness [Not Recovered/Not Resolved]
  - Head discomfort [Not Recovered/Not Resolved]
  - Intentional dose omission [Unknown]

NARRATIVE: CASE EVENT DATE: 20240101
